FAERS Safety Report 17233716 (Version 1)
Quarter: 2020Q1

REPORT INFORMATION
  Report Type: Report from Study
  Country: None (occurrence: US)
  Receive Date: 20200105
  Receipt Date: 20200105
  Transmission Date: 20200409
  Serious: Yes (Other)
  Sender: FDA-Public Use
  Company Number: US-ABBVIE-19K-163-2671348-00

PATIENT
  Sex: Male

DRUGS (3)
  1. HUMIRA [Suspect]
     Active Substance: ADALIMUMAB
     Indication: RHEUMATOID ARTHRITIS
     Route: 058
  2. HUMIRA [Suspect]
     Active Substance: ADALIMUMAB
     Route: 058
     Dates: start: 2019
  3. HUMIRA [Suspect]
     Active Substance: ADALIMUMAB
     Dosage: INCREASE DOSAGE
     Route: 058
     Dates: end: 2019

REACTIONS (5)
  - Drug ineffective [Recovering/Resolving]
  - Meniscus injury [Unknown]
  - Trigger finger [Recovering/Resolving]
  - Bursitis [Recovering/Resolving]
  - Pharyngitis streptococcal [Recovered/Resolved]

NARRATIVE: CASE EVENT DATE: 2019
